FAERS Safety Report 22004735 (Version 2)
Quarter: 2023Q1

REPORT INFORMATION
  Report Type: Spontaneous
  Country: JP (occurrence: JP)
  Receive Date: 20230217
  Receipt Date: 20230303
  Transmission Date: 20230417
  Serious: Yes (Hospitalization)
  Sender: FDA-Public Use
  Company Number: JP-ELI_LILLY_AND_COMPANY-JP202302006418

PATIENT
  Age: 49 Year
  Sex: Female
  Weight: 53.7 kg

DRUGS (4)
  1. VERZENIO [Suspect]
     Active Substance: ABEMACICLIB
     Indication: Breast cancer
     Dosage: 150 MG, BID
     Route: 048
     Dates: start: 20221212, end: 20230116
  2. DENOSUMAB [Concomitant]
     Active Substance: DENOSUMAB
     Dosage: UNK
     Dates: start: 20210510
  3. LETROZOLE [Concomitant]
     Active Substance: LETROZOLE
     Indication: Breast cancer
  4. LEUPLIN [Concomitant]
     Active Substance: LEUPROLIDE ACETATE
     Indication: Breast cancer

REACTIONS (1)
  - Hepatic function abnormal [Recovering/Resolving]

NARRATIVE: CASE EVENT DATE: 20230116
